FAERS Safety Report 8366925-X (Version None)
Quarter: 2012Q2

REPORT INFORMATION
  Report Type: 
  Country: None (occurrence: None)
  Receive Date: 20120517
  Receipt Date: 20120502
  Transmission Date: 20120825
  Serious: Yes (Other)
  Sender: FDA-Public Use
  Company Number: CA-ROCHE-1065824

PATIENT
  Age: 52 Year
  Sex: Female

DRUGS (11)
  1. CYCLOPHOSPHAMIDE [Concomitant]
     Indication: BREAST CANCER
  2. TRASTUZUMAB [Suspect]
     Indication: BREAST CANCER
     Route: 042
  3. DOCETAXEL [Suspect]
     Indication: BREAST CANCER
  4. NEULASTA [Concomitant]
     Indication: PROPHYLAXIS
  5. EPIRUBICIN [Concomitant]
     Indication: BREAST CANCER
  6. ASPIRIN [Concomitant]
     Route: 048
  7. ABRAXANE [Concomitant]
  8. ATORVASTATIN CALCIUM [Concomitant]
     Indication: HYPERCHOLESTEROLAEMIA
     Route: 048
  9. FLUOROURACIL [Concomitant]
     Indication: BREAST CANCER
  10. DEXAMETHASONE TAB [Suspect]
     Indication: BREAST CANCER
  11. METFORMIN HCL [Concomitant]
     Indication: TYPE 2 DIABETES MELLITUS
     Route: 048

REACTIONS (4)
  - INFUSION RELATED REACTION [None]
  - ANXIETY [None]
  - EJECTION FRACTION DECREASED [None]
  - HYPERGLYCAEMIA [None]
